FAERS Safety Report 6477288-9 (Version None)
Quarter: 2009Q4

REPORT INFORMATION
  Report Type: 
  Country: None (occurrence: None)
  Receive Date: 20091204
  Receipt Date: 20091204
  Transmission Date: 20100525
  Serious: Yes (Other)
  Sender: FDA-Public Use
  Company Number: None

PATIENT
  Age: 26 Year
  Sex: Female
  Weight: 73.0291 kg

DRUGS (1)
  1. AVELOX [Suspect]
     Indication: SURGERY
     Dosage: 400 MG. 1 PO
     Route: 048
     Dates: start: 20091128

REACTIONS (3)
  - ARTHRALGIA [None]
  - MYALGIA [None]
  - TENDON PAIN [None]
